FAERS Safety Report 5587791-1 (Version None)
Quarter: 2008Q1

REPORT INFORMATION
  Report Type: 
  Country: None (occurrence: None)
  Receive Date: 20080108
  Receipt Date: 20070604
  Transmission Date: 20080703
  Serious: Yes (Hospitalization)
  Sender: FDA-Public Use
  Company Number: 163-21880-07060160

PATIENT
  Sex: Male

DRUGS (1)
  1. REVLIMID [Suspect]
     Indication: NEOPLASM MALIGNANT
     Dosage: 10 MG, 2 IN 1 D, ORAL
     Route: 048
     Dates: start: 20070427

REACTIONS (1)
  - PULMONARY HAEMORRHAGE [None]
